FAERS Safety Report 5719066-1 (Version None)
Quarter: 2008Q2

REPORT INFORMATION
  Report Type: 
  Country: None (occurrence: None)
  Receive Date: 20080423
  Receipt Date: 20080408
  Transmission Date: 20081010
  Serious: Yes (Hospitalization)
  Sender: FDA-Public Use
  Company Number: 8028486

PATIENT
  Age: 28 Year
  Sex: Female
  Weight: 54 kg

DRUGS (2)
  1. KEPPRA [Suspect]
     Indication: EPILEPSY
     Dosage: 1.5 G 2/D PO
     Route: 048
     Dates: start: 20010101, end: 20071101
  2. ZONISAMIDE [Suspect]
     Indication: EPILEPSY
     Dosage: 250 MG 2/D PO
     Route: 048
     Dates: start: 20070501, end: 20071101

REACTIONS (3)
  - APLASTIC ANAEMIA [None]
  - BLOOD COUNT ABNORMAL [None]
  - NO THERAPEUTIC RESPONSE [None]
